FAERS Safety Report 10004538 (Version 3)
Quarter: 2014Q1

REPORT INFORMATION
  Report Type: Spontaneous
  Country: US (occurrence: US)
  Receive Date: 20140312
  Receipt Date: 20140327
  Transmission Date: 20141002
  Serious: No
  Sender: FDA-Public Use
  Company Number: US-PFIZER INC-2014070756

PATIENT
  Age: 80 Year
  Sex: Male
  Weight: 95.24 kg

DRUGS (7)
  1. GABAPENTIN [Suspect]
     Indication: PAIN
     Dosage: 200 MG, 3X/DAY
  2. LISINOPRIL [Concomitant]
     Indication: HYPERTENSION
     Dosage: 10 MG, 2X/DAY
  3. SIMVASTATIN [Concomitant]
     Indication: BLOOD CHOLESTEROL INCREASED
     Dosage: 10 MG, 1X/DAY
  4. WARFARIN [Concomitant]
     Indication: PROTHROMBIN TIME ABNORMAL
     Dosage: 2.5MG ON MON AND FRI AND 1.25MG ON TUE, WED, THUR, SAT AND SUNDAY, DAILY
  5. FINASTERIDE [Concomitant]
     Indication: PROSTATOMEGALY
     Dosage: 5 MG, 1X/DAY
  6. DIAZEPAM [Concomitant]
     Dosage: UNK
  7. BUSPAR [Concomitant]
     Dosage: UNK

REACTIONS (1)
  - Drug ineffective [Unknown]
